FAERS Safety Report 6528359-X (Version None)
Quarter: 2010Q1

REPORT INFORMATION
  Report Type: 
  Country: None (occurrence: None)
  Receive Date: 20100106
  Receipt Date: 20091231
  Transmission Date: 20100710
  Serious: Yes (Death, Hospitalization, Disabling)
  Sender: FDA-Public Use
  Company Number: PHHY2009EC60146

PATIENT
  Age: 64 Year

DRUGS (5)
  1. ACLASTA [Suspect]
     Indication: OSTEOPOROSIS
     Dosage: UNK
     Route: 042
     Dates: start: 20090801
  2. AMLODIPINE [Concomitant]
  3. COAPROVEL [Concomitant]
  4. COLCHICINE [Concomitant]
  5. UROSIN [Concomitant]
     Indication: GOUTY ARTHRITIS

REACTIONS (7)
  - BACK PAIN [None]
  - BALANCE DISORDER [None]
  - CARDIO-RESPIRATORY ARREST [None]
  - DYSSTASIA [None]
  - FALL [None]
  - GAIT DISTURBANCE [None]
  - RENAL FAILURE [None]
